FAERS Safety Report 23954377 (Version 1)
Quarter: 2024Q2

REPORT INFORMATION
  Report Type: Spontaneous
  Country: US (occurrence: None)
  Receive Date: 20240609
  Receipt Date: 20240609
  Transmission Date: 20240716
  Serious: No
  Sender: FDA-Public Use
  Company Number: US-ROCHE-3404515

PATIENT
  Age: 71 Year
  Sex: Female
  Weight: 69.008 kg

DRUGS (5)
  1. TECENTRIQ [Suspect]
     Active Substance: ATEZOLIZUMAB
     Indication: Hepatic cancer
     Route: 041
     Dates: start: 20230728
  2. AVASTIN [Suspect]
     Active Substance: BEVACIZUMAB
     Indication: Hepatic cancer
     Route: 042
     Dates: start: 20230728
  3. DUPIXENT [Suspect]
     Active Substance: DUPILUMAB
     Indication: Skin disorder
     Dosage: EVERY OTHER WEEK
     Route: 065
  4. LISINOPRIL [Concomitant]
     Active Substance: LISINOPRIL
     Indication: Hypertension
     Route: 048
  5. SIMVASTATIN [Concomitant]
     Active Substance: SIMVASTATIN
     Indication: Blood cholesterol increased
     Route: 048

REACTIONS (4)
  - Pyrexia [Not Recovered/Not Resolved]
  - Contusion [Not Recovered/Not Resolved]
  - Fatigue [Not Recovered/Not Resolved]
  - Asthenia [Not Recovered/Not Resolved]

NARRATIVE: CASE EVENT DATE: 20230729
